FAERS Safety Report 21273346 (Version 1)
Quarter: 2022Q3

REPORT INFORMATION
  Report Type: Report from Study
  Country: JP (occurrence: JP)
  Receive Date: 20220831
  Receipt Date: 20220831
  Transmission Date: 20221026
  Serious: Yes (Death)
  Sender: FDA-Public Use
  Company Number: JP-JNJFOC-20220856560

PATIENT
  Age: 79 Year
  Sex: Female

DRUGS (9)
  1. BOSENTAN [Suspect]
     Active Substance: BOSENTAN
     Indication: Skin ulcer
     Dosage: IN THE MORNING AND EVENING
     Route: 048
     Dates: start: 20210602, end: 20210614
  2. SAMSCA [Concomitant]
     Active Substance: TOLVAPTAN
     Indication: Angina pectoris
     Dosage: TOLVAPTAN OTHER INDICATION:CARDIAC FAILURE
     Route: 048
     Dates: end: 20210702
  3. AMITIZA [Concomitant]
     Active Substance: LUBIPROSTONE
     Indication: Constipation
     Route: 048
     Dates: end: 20210702
  4. ASPIRIN [Concomitant]
     Active Substance: ASPIRIN
     Indication: Angina pectoris
     Route: 048
     Dates: end: 20210702
  5. MAGNESIUM OXIDE [Concomitant]
     Active Substance: MAGNESIUM OXIDE
     Indication: Constipation
     Route: 048
     Dates: end: 20210702
  6. LEVOFLOXACIN HEMIHYDRATE [Concomitant]
     Active Substance: LEVOFLOXACIN
     Indication: Cellulitis
     Route: 048
     Dates: end: 20210702
  7. LOXOPROFEN [Concomitant]
     Active Substance: LOXOPROFEN
     Indication: Pain
     Route: 048
     Dates: end: 20210702
  8. MINODRONIC ACID [Concomitant]
     Active Substance: MINODRONIC ACID
     Indication: Osteoporosis
     Route: 048
     Dates: end: 20210702
  9. CARBOHYDRATES\FATTY ACIDS\MINERALS\PROTEIN\VITAMINS [Concomitant]
     Active Substance: CARBOHYDRATES\FATTY ACIDS\MINERALS\PROTEIN\VITAMINS
     Indication: Malnutrition
     Route: 048

REACTIONS (2)
  - Death [Fatal]
  - Hepatic function abnormal [Recovering/Resolving]

NARRATIVE: CASE EVENT DATE: 20210614
